FAERS Safety Report 20748586 (Version 4)
Quarter: 2022Q3

REPORT INFORMATION
  Report Type: Report from Study
  Country: US (occurrence: US)
  Receive Date: 20220426
  Receipt Date: 20220822
  Transmission Date: 20221027
  Serious: Yes (Hospitalization)
  Sender: FDA-Public Use
  Company Number: US-BIOGEN-2022BI01116789

PATIENT
  Sex: Female

DRUGS (2)
  1. VUMERITY [Suspect]
     Active Substance: DIROXIMEL FUMARATE
     Indication: Multiple sclerosis
     Dosage: STARTING DOSE
     Route: 050
     Dates: start: 20211029
  2. VUMERITY [Suspect]
     Active Substance: DIROXIMEL FUMARATE
     Dosage: MAINTENANCE DOSE
     Route: 050
     Dates: start: 202203

REACTIONS (8)
  - Hypotension [Not Recovered/Not Resolved]
  - Vaginal infection [Recovered/Resolved]
  - Ligament injury [Recovered/Resolved]
  - Dysuria [Recovered/Resolved]
  - Multiple sclerosis [Unknown]
  - Memory impairment [Unknown]
  - Muscle spasms [Unknown]
  - General symptom [Unknown]

NARRATIVE: CASE EVENT DATE: 20220101
